FAERS Safety Report 17195661 (Version 1)
Quarter: 2019Q4

REPORT INFORMATION
  Report Type: Spontaneous
  Country: US (occurrence: US)
  Receive Date: 20191218
  Receipt Date: 20191218
  Transmission Date: 20200122
  Serious: No
  Sender: FDA-Public Use
  Company Number: None

PATIENT
  Sex: Female

DRUGS (2)
  1. ENOXAPARIN SOD SYRINGE [Suspect]
     Active Substance: ENOXAPARIN SODIUM
     Indication: DEEP VEIN THROMBOSIS
     Dosage: ?          OTHER DOSE:80MG/0.8ML;?
     Route: 058
     Dates: start: 20191119
  2. ENOXAPARIN SOD SYRINGE [Suspect]
     Active Substance: ENOXAPARIN SODIUM
     Indication: EMBOLISM
     Dosage: ?          OTHER DOSE:80MG/0.8ML;?
     Route: 058
     Dates: start: 20191119

REACTIONS (1)
  - Injection site bruising [None]
